FAERS Safety Report 16897036 (Version 3)
Quarter: 2020Q1

REPORT INFORMATION
  Report Type: Spontaneous
  Country: DE (occurrence: DE)
  Receive Date: 20191009
  Receipt Date: 20200309
  Transmission Date: 20200409
  Serious: Yes (Other)
  Sender: FDA-Public Use
  Company Number: DE-AUROBINDO-AUR-APL-2018-046255

PATIENT
  Sex: Female

DRUGS (11)
  1. KISQALI [Suspect]
     Active Substance: RIBOCICLIB
     Dosage: 400 MILLIGRAM, ONCE A DAY (QD)
     Route: 048
     Dates: start: 20180523, end: 20180619
  2. KISQALI [Suspect]
     Active Substance: RIBOCICLIB
     Dosage: 400 MILLIGRAM, ONCE A DAY
     Route: 048
     Dates: start: 20180815, end: 20180904
  3. LETROZOLE. [Suspect]
     Active Substance: LETROZOLE
     Indication: BREAST CANCER METASTATIC
     Dosage: 2.5 MILLIGRAM, ONCE A DAY
     Route: 048
     Dates: start: 20180420
  4. KISQALI [Suspect]
     Active Substance: RIBOCICLIB
     Dosage: 400 MILLIGRAM, ONCE A DAY (QD)
     Route: 048
     Dates: start: 20180620, end: 20180710
  5. KISQALI [Suspect]
     Active Substance: RIBOCICLIB
     Dosage: 400 MILLIGRAM, ONCE A DAY (QD)
     Route: 048
     Dates: start: 20181016, end: 20181112
  6. KISQALI [Suspect]
     Active Substance: RIBOCICLIB
     Dosage: 400 MILLIGRAM, ONCE A DAY (QD)
     Route: 048
     Dates: start: 20180815, end: 20180911
  7. KISQALI [Suspect]
     Active Substance: RIBOCICLIB
     Dosage: 400 MILLIGRAM, ONCE A DAY (QD)
     Route: 048
     Dates: start: 20180620, end: 20180717
  8. KISQALI [Suspect]
     Active Substance: RIBOCICLIB
     Indication: BREAST CANCER METASTATIC
     Dosage: 600 MILLIGRAM, ONCE A DAY (QD)
     Route: 048
     Dates: start: 20180420, end: 20180503
  9. KISQALI [Suspect]
     Active Substance: RIBOCICLIB
     Dosage: 400 MILLIGRAM, ONCE A DAY
     Route: 048
     Dates: start: 20180523, end: 20180612
  10. LETROZOLE. [Suspect]
     Active Substance: LETROZOLE
     Dosage: 2.5 MILLIGRAM, ONCE A DAY
     Route: 048
     Dates: start: 20181003
  11. KISQALI [Suspect]
     Active Substance: RIBOCICLIB
     Dosage: 400 MILLIGRAM, ONCE A DAY
     Route: 048
     Dates: start: 20181016, end: 20181106

REACTIONS (10)
  - Fatigue [Not Recovered/Not Resolved]
  - Alopecia [Recovered/Resolved]
  - Neutropenia [Recovered/Resolved]
  - Dyspnoea exertional [Recovered/Resolved]
  - Aspartate aminotransferase increased [Recovering/Resolving]
  - Paraesthesia [Recovered/Resolved]
  - Inappropriate schedule of product administration [Unknown]
  - Alanine aminotransferase increased [Recovering/Resolving]
  - Oedema peripheral [Recovered/Resolved]
  - Transaminases increased [Recovering/Resolving]

NARRATIVE: CASE EVENT DATE: 20180503
